FAERS Safety Report 7513196-X (Version None)
Quarter: 2011Q2

REPORT INFORMATION
  Report Type: 
  Country: None (occurrence: None)
  Receive Date: 20110525
  Receipt Date: 20110525
  Transmission Date: 20111010
  Serious: Yes (Disabling)
  Sender: FDA-Public Use
  Company Number: None

PATIENT
  Sex: Female
  Weight: 79.3795 kg

DRUGS (1)
  1. LEVAQUIN [Suspect]
     Dosage: 500MG 1
     Dates: start: 20110328, end: 20110406

REACTIONS (3)
  - MALAISE [None]
  - ASTHENIA [None]
  - HEART RATE DECREASED [None]
